FAERS Safety Report 25755516 (Version 2)
Quarter: 2025Q3

REPORT INFORMATION
  Report Type: Report from Study
  Country: CN (occurrence: CN)
  Receive Date: 20250903
  Receipt Date: 20250916
  Transmission Date: 20251020
  Serious: Yes (Hospitalization, Other)
  Sender: ROCHE
  Company Number: CN-ROCHE-10000167636

PATIENT
  Age: 63 Year
  Sex: Male
  Weight: 66 kg

DRUGS (4)
  1. ATEZOLIZUMAB [Suspect]
     Active Substance: ATEZOLIZUMAB
     Indication: Hepatic cancer
     Route: 042
     Dates: end: 202508
  2. BEVACIZUMAB [Suspect]
     Active Substance: BEVACIZUMAB
     Indication: Hepatic cancer
     Dosage: 100MG(4ML)/BOTTLE/BOX, 15MG/KG/21DAYS?START DATE: 19-NOV-2024
     Route: 042
     Dates: end: 202508
  3. Tenofovir fumarate tablets [Concomitant]
     Indication: Hepatitis B
  4. PHOSPHOLIPID [Concomitant]
     Active Substance: PHOSPHOLIPID
     Indication: Hepatitis B
     Route: 048
     Dates: start: 20250327

REACTIONS (19)
  - Fatigue [Recovered/Resolved]
  - Dry skin [Recovering/Resolving]
  - Night sweats [Not Recovered/Not Resolved]
  - Therapeutic procedure [Unknown]
  - Pruritus [Recovering/Resolving]
  - Post procedural pneumonia [Recovering/Resolving]
  - Erythema [Recovering/Resolving]
  - Hypogeusia [Recovering/Resolving]
  - Taste disorder [Recovering/Resolving]
  - Skin exfoliation [Not Recovered/Not Resolved]
  - Epistaxis [Not Recovered/Not Resolved]
  - Decreased appetite [Not Recovered/Not Resolved]
  - Dry skin [Not Recovered/Not Resolved]
  - Diarrhoea [Not Recovered/Not Resolved]
  - Pruritus [Not Recovered/Not Resolved]
  - Interstitial lung disease [Recovering/Resolving]
  - Erythema [Not Recovered/Not Resolved]
  - Hypoxia [Recovering/Resolving]
  - Cough [Recovering/Resolving]

NARRATIVE: CASE EVENT DATE: 20241101
